FAERS Safety Report 4510473-1 (Version None)
Quarter: 2004Q4

REPORT INFORMATION
  Report Type: 
  Country: None (occurrence: None)
  Receive Date: 20041124
  Receipt Date: 20041112
  Transmission Date: 20050328
  Serious: Yes (Hospitalization)
  Sender: FDA-Public Use
  Company Number: FR-GLAXOSMITHKLINE-B0357168A

PATIENT
  Age: 30 Year
  Sex: Female

DRUGS (1)
  1. AZANTAC [Suspect]
     Indication: DYSPEPSIA
     Dosage: 1UNIT SINGLE DOSE
     Route: 048
     Dates: start: 20040401, end: 20040401

REACTIONS (6)
  - ABDOMINAL PAIN [None]
  - ANGIONEUROTIC OEDEMA [None]
  - CHEST DISCOMFORT [None]
  - ERYTHEMA [None]
  - PARAESTHESIA [None]
  - VOMITING [None]
